FAERS Safety Report 4280735-4 (Version None)
Quarter: 2004Q1

REPORT INFORMATION
  Report Type: 
  Country: None (occurrence: None)
  Receive Date: 20040129
  Receipt Date: 20031120
  Transmission Date: 20041129
  Serious: No
  Sender: FDA-Public Use
  Company Number: US-BRISTOL-MYERS SQUIBB COMPANY-12440897

PATIENT
  Age: 69 Year
  Sex: Male

DRUGS (4)
  1. METAGLIP [Suspect]
     Indication: DIABETES MELLITUS NON-INSULIN-DEPENDENT
     Route: 048
     Dates: start: 20031025
  2. ASPIRIN [Concomitant]
  3. TOPROL-XL [Concomitant]
  4. DIOVAN [Concomitant]

REACTIONS (1)
  - DIARRHOEA [None]
